FAERS Safety Report 18283203 (Version 1)
Quarter: 2020Q3

REPORT INFORMATION
  Report Type: Spontaneous
  Country: FR (occurrence: FR)
  Receive Date: 20200918
  Receipt Date: 20200918
  Transmission Date: 20201103
  Serious: Yes (Hospitalization)
  Sender: FDA-Public Use
  Company Number: FR-PFIZER INC-2020360304

PATIENT
  Age: 31 Year
  Sex: Male
  Weight: 77.5 kg

DRUGS (4)
  1. SPECIAFOLDINE [Concomitant]
     Active Substance: FOLIC ACID
     Indication: VITAMIN SUPPLEMENTATION
     Dosage: 1 DF, WEEKLY
     Route: 048
     Dates: start: 202007, end: 20200725
  2. CORTANCYL [Interacting]
     Active Substance: PREDNISONE
     Indication: RETINAL VASCULITIS
     Dosage: 16 MG, 1X/DAY
     Route: 048
     Dates: start: 202001
  3. METHOTREXATE SODIUM. [Suspect]
     Active Substance: METHOTREXATE SODIUM
     Indication: RETINAL VASCULITIS
     Dosage: 15 MG, WEEKLY
     Route: 048
     Dates: start: 20200702, end: 20200725
  4. ADALIMUMAB [Interacting]
     Active Substance: ADALIMUMAB
     Indication: RETINAL VASCULITIS
     Dosage: 40 MG (EVERY 15 DAYS)
     Route: 058
     Dates: start: 202003, end: 20200725

REACTIONS (4)
  - Disseminated tuberculosis [Recovering/Resolving]
  - Product use in unapproved indication [Recovered/Resolved]
  - Drug interaction [Recovering/Resolving]
  - Off label use [Recovered/Resolved]

NARRATIVE: CASE EVENT DATE: 202007
